FAERS Safety Report 7964432 (Version 2)
Quarter: 2013Q3

REPORT INFORMATION
  Report Type: Spontaneous
  Country: GB (occurrence: None)
  Receive Date: 20110510
  Receipt Date: 20130705
  Transmission Date: 20140515
  Serious: Yes (Hospitalization)
  Sender: FDA-Public Use
  Company Number: GB-021186

PATIENT
  Age: 80 Year
  Sex: Male
  Weight: 72.2 kg

DRUGS (4)
  1. CHLORAMBUCIL [Suspect]
     Indication: CHRONIC LYMPHOCYTIC LEUKAEMIA
     Dosage: 10 MGM2 DAYS 1-7 EVERY 28 DAYS, ORAL
     Route: 048
     Dates: start: 20100609
  2. OFATUMUMAB [Suspect]
     Indication: CHRONIC LYMPHOCYTIC LEUKAEMIA
     Dosage: 300MG DAY 1, 1000MG DAY 8 FOLLOWED BY 1000MG EVERY 28 DAYS INTRAVENOUS
     Route: 042
     Dates: start: 20100609
  3. RAMIPRIL [Concomitant]
  4. DILTIAZEM [Concomitant]

REACTIONS (3)
  - Dermatitis allergic [None]
  - Hypotension [None]
  - Drug hypersensitivity [None]
